FAERS Safety Report 9819548 (Version 3)
Quarter: 2014Q1

REPORT INFORMATION
  Report Type: Spontaneous
  Country: US (occurrence: US)
  Receive Date: 20140115
  Receipt Date: 20140221
  Transmission Date: 20141002
  Serious: Yes (Life-Threatening, Hospitalization, Other)
  Sender: FDA-Public Use
  Company Number: US-009507513-1401USA004829

PATIENT
  Sex: Male
  Weight: 158.73 kg

DRUGS (3)
  1. JANUMET [Suspect]
     Indication: TYPE 2 DIABETES MELLITUS
     Dosage: 50/1000 MG, BID
     Route: 048
     Dates: start: 20071210, end: 20100207
  2. INSULIN [Concomitant]
     Indication: TYPE 2 DIABETES MELLITUS
  3. OMEPRAZOLE [Concomitant]

REACTIONS (38)
  - Pancreatic carcinoma metastatic [Unknown]
  - Bile duct stent insertion [Unknown]
  - Type 2 diabetes mellitus [Unknown]
  - Peptic ulcer [Unknown]
  - Gastrointestinal ulcer haemorrhage [Unknown]
  - Iron deficiency anaemia [Unknown]
  - Cerebrovascular accident [Recovered/Resolved]
  - Blindness [Unknown]
  - Coronary artery bypass [Unknown]
  - Myocardial infarction [Unknown]
  - Heart valve replacement [Unknown]
  - Coronary artery bypass [Unknown]
  - Gastrooesophageal reflux disease [Recovered/Resolved]
  - Pancreatic cyst [Unknown]
  - Vision blurred [Unknown]
  - Hypertension [Unknown]
  - Inguinal hernia repair [Unknown]
  - Hyponatraemia [Unknown]
  - Renal cyst [Unknown]
  - Nephrolithiasis [Unknown]
  - Umbilical hernia [Unknown]
  - Prostatomegaly [Unknown]
  - Blood osmolarity decreased [Unknown]
  - Diabetes mellitus inadequate control [Unknown]
  - Device occlusion [Unknown]
  - Bile duct stent insertion [Unknown]
  - Syncope [Unknown]
  - Iron deficiency anaemia [Unknown]
  - Oedema peripheral [Unknown]
  - Neck mass [Unknown]
  - Dyspnoea [Unknown]
  - Asthenia [Unknown]
  - Vision blurred [Unknown]
  - Device related infection [Unknown]
  - Cardiac failure congestive [Unknown]
  - Cardiac valve vegetation [Unknown]
  - Upper respiratory tract infection [Unknown]
  - Blood creatinine increased [Unknown]
